FAERS Safety Report 7950203-4 (Version None)
Quarter: 2011Q4

REPORT INFORMATION
  Report Type: 
  Country: None (occurrence: None)
  Receive Date: 20111130
  Receipt Date: 20111125
  Transmission Date: 20120403
  Serious: Yes (Other)
  Sender: FDA-Public Use
  Company Number: MX-SANOFI-AVENTIS-2011SA077890

PATIENT
  Age: 59 Year
  Sex: Female
  Weight: 83 kg

DRUGS (4)
  1. METFORMIN HCL [Suspect]
     Indication: TYPE 2 DIABETES MELLITUS
     Route: 048
     Dates: start: 20110901
  2. LANTUS [Suspect]
     Dosage: 15 IU IN THE MORNING AND 15 IU AT NIGHT
     Route: 058
     Dates: start: 20111101
  3. LANTUS [Suspect]
     Indication: TYPE 2 DIABETES MELLITUS
     Dosage: 15 IU IN THE MORNING AND 15 IU AT NIGHT
     Route: 058
     Dates: start: 20050101, end: 20110901
  4. LANTUS [Suspect]
     Dosage: 30 IU IN THE MORNING AND 15 IU AT NIGHT
     Route: 058
     Dates: start: 20110901, end: 20111101

REACTIONS (4)
  - BONE FISSURE [None]
  - HYPERGLYCAEMIA [None]
  - DRUG ADMINISTRATION ERROR [None]
  - HYPOGLYCAEMIA [None]
